FAERS Safety Report 21362589 (Version 1)
Quarter: 2022Q3

REPORT INFORMATION
  Report Type: Report from Study
  Country: DE (occurrence: DE)
  Receive Date: 20220922
  Receipt Date: 20220922
  Transmission Date: 20221027
  Serious: Yes (Other)
  Sender: FDA-Public Use
  Company Number: DE-ROCHE-3153764

PATIENT
  Age: 47 Year
  Sex: Female
  Weight: 91 kg

DRUGS (5)
  1. PACLITAXEL [Suspect]
     Active Substance: PACLITAXEL
     Indication: Breast cancer
     Dates: start: 20220405
  2. CARBOPLATIN [Suspect]
     Active Substance: CARBOPLATIN
     Indication: Breast cancer
     Dosage: DATE AND DOSE OF LAST ADMINISTRATION PRIOR EVENT ON 21/JUL/2022 IS 690MG. FREQUENCY PER CYCLE., DATE
     Dates: start: 20220405
  3. PERTUZUMAB [Suspect]
     Active Substance: PERTUZUMAB
     Indication: Breast cancer
     Dosage: DATE AND DOSE OF LAST ADMINISTRATION PRIOR EVENT ON 21/JUL/2022 IS 420MG. FREQUENCY PER CYCLE , DATE
     Dates: start: 20220405
  4. TRASTUZUMAB [Suspect]
     Active Substance: TRASTUZUMAB
     Indication: Breast cancer
     Dosage: DATE AND DOSE OF LAST ADMINISTRATION PRIOR EVENT ON 21/JUL/2022 IS 546MG. FREQUENCY PER CYCLE , DATE
     Dates: start: 20220405
  5. PEGFILGRASTIM [Concomitant]
     Active Substance: PEGFILGRASTIM
     Indication: Product used for unknown indication
     Dosage: FREQUENCY TIME : 1 DAY , DURATION : 2 DAY
     Dates: start: 20220729, end: 20220730

REACTIONS (3)
  - Neutropenia [Recovered/Resolved]
  - Polyneuropathy [Not Recovered/Not Resolved]
  - Anaemia [Not Recovered/Not Resolved]

NARRATIVE: CASE EVENT DATE: 20220701
